FAERS Safety Report 19911643 (Version 1)
Quarter: 2021Q4

REPORT INFORMATION
  Report Type: Spontaneous
  Country: US (occurrence: US)
  Receive Date: 20211002
  Receipt Date: 20211002
  Transmission Date: 20220303
  Serious: Yes (Hospitalization, Disabling, Other)
  Sender: FDA-Public Use
  Company Number: None

PATIENT
  Age: 44 Year
  Sex: Female
  Weight: 108 kg

DRUGS (6)
  1. REMDESIVIR [Suspect]
     Active Substance: REMDESIVIR
     Indication: Neuralgia
     Dosage: ?          QUANTITY:1 1;
     Route: 042
  2. NUROTIN [Concomitant]
  3. METOPRAH [Concomitant]
  4. ZOFRAN [Concomitant]
     Active Substance: ONDANSETRON HYDROCHLORIDE
  5. ZOLOFT [Concomitant]
     Active Substance: SERTRALINE HYDROCHLORIDE
  6. TYLENOL [Concomitant]
     Active Substance: ACETAMINOPHEN

REACTIONS (6)
  - Hallucination [None]
  - Hyperhidrosis [None]
  - Insomnia [None]
  - Neuralgia [None]
  - Urinary tract infection [None]
  - Renal disorder [None]

NARRATIVE: CASE EVENT DATE: 20210724
